FAERS Safety Report 7810822-2 (Version None)
Quarter: 2011Q4

REPORT INFORMATION
  Report Type: 
  Country: None (occurrence: None)
  Receive Date: 20111011
  Receipt Date: 20110927
  Transmission Date: 20120403
  Serious: Yes (Other)
  Sender: FDA-Public Use
  Company Number: 2011AP002233

PATIENT
  Age: 61 Year
  Sex: Female

DRUGS (2)
  1. INFLUENZA VIRUS (INFLUENZA VACCINE) [Concomitant]
  2. AMLODIPINE [Suspect]

REACTIONS (1)
  - GINGIVAL ATROPHY [None]
